FAERS Safety Report 21138404 (Version 3)
Quarter: 2022Q4

REPORT INFORMATION
  Report Type: Spontaneous
  Country: PT (occurrence: None)
  Receive Date: 20220727
  Receipt Date: 20221123
  Transmission Date: 20230112
  Serious: Yes (Hospitalization)
  Sender: FDA-Public Use
  Company Number: 2022A261249

PATIENT
  Age: 71 Year
  Sex: Female
  Weight: 57 kg

DRUGS (14)
  1. TAGRISSO [Suspect]
     Active Substance: OSIMERTINIB
     Indication: Lung adenocarcinoma stage IV
     Route: 048
     Dates: start: 20220406, end: 20220705
  2. PANTOPRAZOLE [Concomitant]
     Active Substance: PANTOPRAZOLE
     Route: 048
  3. OLANZAPINE [Concomitant]
     Active Substance: OLANZAPINE
     Dosage: 1+1+1, 7.5 MG DAILY
     Route: 048
  4. MORPHINE [Concomitant]
     Active Substance: MORPHINE
     Dosage: 1 CP IN SOS EVERY HOUR, MAXIMUM 6 UNITS PER DAY
  5. PREDNISOLONE [Concomitant]
     Active Substance: PREDNISOLONE
     Route: 048
  6. METOCLOPRAMIDE [Concomitant]
     Active Substance: METOCLOPRAMIDE
     Dosage: 1+1+1, 30 MG DAILY
     Route: 048
  7. BISOPROLOL [Concomitant]
     Active Substance: BISOPROLOL
     Route: 048
  8. CANDESARTAN [Concomitant]
     Active Substance: CANDESARTAN
     Dosage: 1/2 CP + 0 + 1/2 CP, 16 MG DAILY
     Route: 048
  9. AMITRIPTYLINE HYDROCHLORIDE [Concomitant]
     Active Substance: AMITRIPTYLINE HYDROCHLORIDE
     Route: 048
  10. MEGESTROL [Concomitant]
     Active Substance: MEGESTROL
     Route: 048
  11. ATORVASTATIN [Concomitant]
     Active Substance: ATORVASTATIN
     Route: 048
  12. BROTIZOLAM [Concomitant]
     Active Substance: BROTIZOLAM
     Route: 048
  13. SERTRRALINA [Concomitant]
     Route: 048
  14. ASPIRIN [Concomitant]
     Active Substance: ASPIRIN
     Route: 048

REACTIONS (2)
  - Stress cardiomyopathy [Unknown]
  - Electrocardiogram PR prolongation [Recovered/Resolved]

NARRATIVE: CASE EVENT DATE: 20220703
